FAERS Safety Report 26216657 (Version 1)
Quarter: 2025Q4

REPORT INFORMATION
  Report Type: Report from Study
  Country: EU (occurrence: EU)
  Receive Date: 20251231
  Receipt Date: 20251231
  Transmission Date: 20260117
  Serious: Yes (Hospitalization, Other)
  Sender: ABBVIE
  Company Number: EU-ABBVIE-6610182

PATIENT
  Sex: Female

DRUGS (1)
  1. FOSCARBIDOPA\FOSLEVODOPA [Suspect]
     Active Substance: FOSCARBIDOPA\FOSLEVODOPA
     Indication: Parkinson^s disease
     Dosage: CRN 0.40 ML/H; CR 0.45 ML/H; CRH 0.47 ML/H; ED 0.10 ML.
     Route: 058
     Dates: start: 20240610

REACTIONS (2)
  - Seizure [Not Recovered/Not Resolved]
  - Pain [Unknown]
